FAERS Safety Report 8410339-0 (Version None)
Quarter: 2012Q2

REPORT INFORMATION
  Report Type: 
  Country: None (occurrence: None)
  Receive Date: 20120529
  Receipt Date: 20120516
  Transmission Date: 20120825
  Serious: Yes (Hospitalization, Other)
  Sender: FDA-Public Use
  Company Number: CIP11000122

PATIENT
  Age: 64 Year
  Sex: Female

DRUGS (16)
  1. FOSAMAX [Suspect]
     Dosage: 70 MG, ONCE WEEKLY, ORAL
     Route: 048
  2. LANTUS [Concomitant]
  3. PROZAC [Concomitant]
  4. LORTAB [Concomitant]
  5. ULGTRAM (TRAMADOL HYDROCHLORIDE) [Concomitant]
  6. ACTONEL [Suspect]
     Dosage: UNKNOWN DOSAGE/REGIMEN, ORAL
     Route: 048
     Dates: start: 20050801, end: 20060801
  7. LASIX [Concomitant]
  8. FORTEO [Concomitant]
  9. ZYRTEC [Concomitant]
  10. BONIVA [Suspect]
     Indication: OSTEOPOROSIS
     Dosage: 150 MG, ONCE MONTHLY, ORAL
     Route: 048
     Dates: start: 20060829
  11. ADIPEX (PHENTERMNE) [Concomitant]
  12. BYETTA [Concomitant]
  13. PLAVIX [Concomitant]
  14. ASPIRIN [Concomitant]
  15. NOVOLOG [Concomitant]
  16. LYRICA [Concomitant]

REACTIONS (12)
  - BONE DISORDER [None]
  - OSTEOGENESIS IMPERFECTA [None]
  - STRESS FRACTURE [None]
  - PERIPROSTHETIC FRACTURE [None]
  - FRACTURE NONUNION [None]
  - FEMUR FRACTURE [None]
  - LOW TURNOVER OSTEOPATHY [None]
  - GAIT DISTURBANCE [None]
  - DEVICE BREAKAGE [None]
  - FALL [None]
  - PAIN IN EXTREMITY [None]
  - BONE GRAFT [None]
